FAERS Safety Report 7672756-6 (Version None)
Quarter: 2011Q3

REPORT INFORMATION
  Report Type: 
  Country: None (occurrence: None)
  Receive Date: 20110809
  Receipt Date: 20110801
  Transmission Date: 20111222
  Serious: Yes (Hospitalization)
  Sender: FDA-Public Use
  Company Number: US-JNJFOC-20090202455

PATIENT
  Age: 9 Year
  Sex: Male
  Weight: 33.1 kg

DRUGS (2)
  1. REMICADE [Suspect]
     Indication: INFLAMMATORY BOWEL DISEASE
     Dosage: TOTAL 5 DOSES
     Route: 042
     Dates: start: 20081210
  2. REMICADE [Suspect]
     Route: 042
     Dates: start: 20080807

REACTIONS (1)
  - PERIORBITAL CELLULITIS [None]
